FAERS Safety Report 22182441 (Version 1)
Quarter: 2023Q2

REPORT INFORMATION
  Report Type: Other
  Country: None (occurrence: US)
  Receive Date: 20230406
  Receipt Date: 20230406
  Transmission Date: 20230722
  Serious: Yes (Life-Threatening)
  Sender: FDA-Public Use
  Company Number: US-B.Braun Medical Inc.-2140002

PATIENT
  Age: 65 Year
  Sex: Male

DRUGS (3)
  1. POTASSIUM CHLORIDE [Suspect]
     Active Substance: POTASSIUM CHLORIDE
     Indication: Mineral supplementation
  2. SPIRONOLACTONE [Suspect]
     Active Substance: SPIRONOLACTONE
  3. LOSARTAN [Suspect]
     Active Substance: LOSARTAN

REACTIONS (2)
  - Acute kidney injury [Unknown]
  - Atrioventricular block [Unknown]
